FAERS Safety Report 5630780-9 (Version None)
Quarter: 2008Q1

REPORT INFORMATION
  Report Type: 
  Country: None (occurrence: None)
  Receive Date: 20080212
  Receipt Date: 20080204
  Transmission Date: 20080703
  Serious: Yes (Death)
  Sender: FDA-Public Use
  Company Number: 2008-00929

PATIENT
  Age: 34 Year
  Sex: Female

DRUGS (8)
  1. NAPROXEN [Suspect]
  2. DICLOFENAC POTASSIUM [Suspect]
  3. LORATADINE AND PSEUDOEPHEDRINE SULFATE [Suspect]
  4. BUPROPION HYDROCHLORIDE [Suspect]
  5. ETHANOL(ETHANOL) [Suspect]
  6. VENLAFAXINE HCL [Suspect]
  7. CLOMIPHENE CITRATE [Suspect]
  8. COUGH AND COLD PREPARATIONS() [Suspect]

REACTIONS (1)
  - CARDIO-RESPIRATORY ARREST [None]
